FAERS Safety Report 5867905-6 (Version None)
Quarter: 2008Q3

REPORT INFORMATION
  Report Type: 
  Country: None (occurrence: None)
  Receive Date: 20080902
  Receipt Date: 20080702
  Transmission Date: 20090109
  Serious: No
  Sender: FDA-Public Use
  Company Number: US-ABBOTT-08P-163-0460562-00

PATIENT
  Sex: Female

DRUGS (6)
  1. DEPAKOTE ER [Suspect]
     Indication: BIPOLAR DISORDER
     Route: 048
     Dates: start: 20060330
  2. DEPAKOTE ER [Suspect]
     Route: 048
  3. DEPAKOTE [Suspect]
     Indication: BIPOLAR DISORDER
     Route: 048
  4. ARIPIPRAZOLE [Concomitant]
     Indication: BIPOLAR DISORDER
     Route: 048
  5. LORAZEPAM [Concomitant]
     Indication: BIPOLAR DISORDER
     Route: 048
  6. BENZTROPINE MESYLATE [Concomitant]
     Indication: TREMOR
     Route: 048

REACTIONS (2)
  - TREMOR [None]
  - WHITE BLOOD CELL COUNT ABNORMAL [None]
